FAERS Safety Report 5385604-4 (Version None)
Quarter: 2007Q3

REPORT INFORMATION
  Report Type: 
  Country: None (occurrence: None)
  Receive Date: 20070712
  Receipt Date: 20070702
  Transmission Date: 20080115
  Serious: Yes (Hospitalization)
  Sender: FDA-Public Use
  Company Number: PH-SANOFI-SYNTHELABO-A01200707112

PATIENT
  Age: 63 Year
  Sex: Male

DRUGS (7)
  1. INSULIN [Concomitant]
     Indication: DIABETES MELLITUS
     Dosage: 18-8IU
     Route: 058
     Dates: start: 20070401
  2. CITICHOLINE [Concomitant]
     Indication: CEREBROVASCULAR ACCIDENT
     Dosage: 5 CC TWICE DAILY
     Route: 065
     Dates: start: 20070301
  3. NAHCO3 [Concomitant]
     Indication: RENAL FAILURE CHRONIC
     Route: 065
     Dates: start: 20070301
  4. SIMVASTATIN [Concomitant]
     Indication: HYPERCHOLESTEROLAEMIA
     Route: 065
     Dates: start: 20070301
  5. MOEXIPRIL HCL [Concomitant]
     Indication: HYPERTENSION
     Route: 065
     Dates: start: 20070401
  6. AMLODIPINE [Concomitant]
     Indication: HYPERTENSION
     Route: 065
     Dates: start: 20070301
  7. PLAVIX [Suspect]
     Indication: CEREBROVASCULAR ACCIDENT
     Route: 048
     Dates: start: 20070301, end: 20070501

REACTIONS (5)
  - ANAEMIA [None]
  - DYSPNOEA [None]
  - PALLOR [None]
  - PEPTIC ULCER [None]
  - TACHYCARDIA [None]
